FAERS Safety Report 8916699 (Version 2)
Quarter: 2012Q4

REPORT INFORMATION
  Report Type: 
  Country: US (occurrence: US)
  Receive Date: 20121120
  Receipt Date: 20121214
  Transmission Date: 20130627
  Serious: No
  Sender: FDA-Public Use
  Company Number: US-ASTRAZENECA-2012SE85068

PATIENT
  Sex: Female

DRUGS (3)
  1. SEROQUEL [Suspect]
     Indication: ANXIETY
     Route: 048
     Dates: start: 2005
  2. SEROQUEL [Suspect]
     Indication: ANXIETY
     Dosage: GENERIC
     Route: 048
     Dates: start: 2012
  3. SEROQUEL [Suspect]
     Indication: ANXIETY
     Dosage: GENERIC
     Route: 048

REACTIONS (7)
  - Blood pressure increased [Unknown]
  - Crying [Unknown]
  - Disturbance in attention [Unknown]
  - Peroneal nerve palsy [Unknown]
  - Condition aggravated [Unknown]
  - Tremor [Unknown]
  - Off label use [Unknown]
